FAERS Safety Report 5821382-X (Version None)
Quarter: 2008Q3

REPORT INFORMATION
  Report Type: 
  Country: None (occurrence: None)
  Receive Date: 20080724
  Receipt Date: 20080716
  Transmission Date: 20090109
  Serious: Yes (Other)
  Sender: FDA-Public Use
  Company Number: BR-ROCHE-568918

PATIENT
  Sex: Female
  Weight: 75 kg

DRUGS (6)
  1. BONIVA [Suspect]
     Indication: OSTEOPENIA
     Route: 048
     Dates: start: 20070901
  2. SYNTHROID [Concomitant]
     Indication: HYPERTHYROIDISM
  3. OMEPRAZOLE [Concomitant]
  4. 1 CONCOMITANT DRUG [Concomitant]
     Indication: MENOPAUSE
     Dosage: DRUG: SOYA BEAN HORMONE
  5. MOTILIUM [Concomitant]
     Indication: GASTRIC DISORDER
  6. VITAMIN [Concomitant]
     Dosage: DRUG: CALDE

REACTIONS (4)
  - COUGH [None]
  - HIATUS HERNIA [None]
  - OROPHARYNGEAL PAIN [None]
  - VARICOSE VEIN OPERATION [None]
